FAERS Safety Report 4887790-9 (Version None)
Quarter: 2006Q1

REPORT INFORMATION
  Report Type: 
  Country: None (occurrence: None)
  Receive Date: 20060123
  Receipt Date: 20050111
  Transmission Date: 20060701
  Serious: Yes (Hospitalization, Disabling)
  Sender: FDA-Public Use
  Company Number: US-ROCHE-392059

PATIENT
  Age: 49 Year
  Sex: Male

DRUGS (8)
  1. PEG-INTERFERON ALFA 2A (RO 25-8310) [Suspect]
     Route: 058
     Dates: start: 20041026, end: 20041222
  2. PEG-INTERFERON ALFA 2A (RO 25-8310) [Suspect]
     Route: 058
     Dates: start: 20050105, end: 20050105
  3. RIBAVIRIN [Suspect]
     Route: 048
     Dates: start: 20041026, end: 20041222
  4. RIBAVIRIN [Suspect]
     Route: 048
     Dates: start: 20050105, end: 20050115
  5. SERTRALINE HYDROCHLORIDE [Concomitant]
     Dates: start: 19980615
  6. TRAZODONE HCL [Concomitant]
     Dates: start: 20010615
  7. HYDROCHLOROTHIAZIDE [Concomitant]
     Dates: start: 20041106
  8. BENAZEPRIL HCL [Concomitant]
     Dates: start: 20041106

REACTIONS (9)
  - BLASTOCYSTIS INFECTION [None]
  - COELIAC DISEASE [None]
  - DEHYDRATION [None]
  - DIARRHOEA [None]
  - GASTROENTERITIS [None]
  - HYPOKALAEMIA [None]
  - SYNCOPE [None]
  - URINE OUTPUT DECREASED [None]
  - VARICES OESOPHAGEAL [None]
